FAERS Safety Report 13973941 (Version 2)
Quarter: 2017Q4

REPORT INFORMATION
  Report Type: Spontaneous
  Country: JP (occurrence: JP)
  Receive Date: 20170915
  Receipt Date: 20171013
  Transmission Date: 20180321
  Serious: Yes (Other)
  Sender: FDA-Public Use
  Company Number: JP-PFIZER INC-2017393925

PATIENT
  Age: 5 Decade
  Sex: Female

DRUGS (1)
  1. AZULFIDINE EN-TABS [Suspect]
     Active Substance: SULFASALAZINE
     Route: 048

REACTIONS (4)
  - Fluid retention [Unknown]
  - Internal haemorrhage [Unknown]
  - Skin discolouration [Unknown]
  - Pain in extremity [Unknown]
